FAERS Safety Report 10166038 (Version 1)
Quarter: 2014Q2

REPORT INFORMATION
  Report Type: Other
  Country: AU (occurrence: DE)
  Receive Date: 20140511
  Receipt Date: 20140511
  Transmission Date: 20141212
  Serious: Yes (Hospitalization, Other)
  Sender: FDA-Public Use
  Company Number: DE-BRISTOL-MYERS SQUIBB COMPANY-20705109

PATIENT
  Age: 33 Year
  Sex: Female

DRUGS (2)
  1. ARIPIPRAZOLE [Suspect]
     Dosage: INCREASED TO 15MG AFTER 5 DAYS
  2. MIRTAZAPINE [Concomitant]
     Indication: DEPRESSIVE SYMPTOM
     Dosage: INCREASED TO 30MG.

REACTIONS (1)
  - Psychotic disorder [Unknown]
